FAERS Safety Report 15575145 (Version 2)
Quarter: 2018Q4

REPORT INFORMATION
  Report Type: Spontaneous
  Country: PL (occurrence: PL)
  Receive Date: 20181101
  Receipt Date: 20181120
  Transmission Date: 20190205
  Serious: Yes (Hospitalization, Other)
  Sender: FDA-Public Use
  Company Number: PL-BAYER-2018-199157

PATIENT
  Age: 19 Year
  Sex: Female

DRUGS (2)
  1. SPIRONOLACTONE. [Concomitant]
     Active Substance: SPIRONOLACTONE
  2. JAYDESS [Suspect]
     Active Substance: LEVONORGESTREL
     Indication: CONTRACEPTION
     Dosage: 14 MCG/24HR, CONT
     Route: 015
     Dates: start: 201709, end: 201810

REACTIONS (4)
  - Abdominal pain lower [None]
  - Device dislocation [Recovered/Resolved]
  - Uterine haemorrhage [Recovered/Resolved]
  - Uterine cervix stenosis [Recovered/Resolved]
